FAERS Safety Report 7541102-0 (Version None)
Quarter: 2011Q2

REPORT INFORMATION
  Report Type: 
  Country: None (occurrence: None)
  Receive Date: 20110610
  Receipt Date: 20110526
  Transmission Date: 20111010
  Serious: Yes (Other)
  Sender: FDA-Public Use
  Company Number: BR-WATSON-2011-07546

PATIENT
  Age: 57 Year
  Sex: Female

DRUGS (5)
  1. METHYLDOPA [Concomitant]
     Indication: PRODUCT USED FOR UNKNOWN INDICATION
     Dosage: TWO TABLETS/DAY
     Route: 065
  2. VENALOT                            /00021901/ [Concomitant]
     Indication: PRODUCT USED FOR UNKNOWN INDICATION
     Dosage: 90MG, ONE TABLET/DAY-SHE INTERRUPTED THE USE ONE MONTH AGO
     Route: 065
  3. SERTRALINE HYDROCHLORIDE [Suspect]
     Indication: DEPRESSION
     Dosage: ONE TABLET ONCE A DAY (EVERY MORNING)
     Route: 048
     Dates: start: 20090101, end: 20110521
  4. ANSIRAX [Concomitant]
     Indication: PRODUCT USED FOR UNKNOWN INDICATION
     Dosage: 2MG, ONE TABLET/DAY Q NIGHT AND AS NEEDED (WHEN VERY NERVOUS, SHE TAKES ONE TABLET AT MORNING
     Route: 065
  5. HYDROCHLOROTHIAZIDE [Concomitant]
     Indication: PRODUCT USED FOR UNKNOWN INDICATION
     Dosage: 25MG, TWO TABLETS/DAY BEFORE BREAKFAST
     Route: 065

REACTIONS (9)
  - INSOMNIA [None]
  - MEDICATION ERROR [None]
  - WEIGHT INCREASED [None]
  - NERVOUSNESS [None]
  - HYPOAESTHESIA [None]
  - WEIGHT DECREASED [None]
  - PRURITUS [None]
  - VISION BLURRED [None]
  - DRY MOUTH [None]
